FAERS Safety Report 17358755 (Version 1)
Quarter: 2020Q1

REPORT INFORMATION
  Report Type: Spontaneous
  Country: US (occurrence: US)
  Receive Date: 20200201
  Receipt Date: 20200201
  Transmission Date: 20200409
  Serious: No
  Sender: FDA-Public Use
  Company Number: US-LANNETT COMPANY, INC.-US-2019LAN000922

PATIENT

DRUGS (3)
  1. IMITREX [Concomitant]
     Active Substance: SUMATRIPTAN SUCCINATE
     Indication: MIGRAINE
     Dosage: 100 MG, PRN
     Route: 048
  2. BACLOFEN (10MG) [Suspect]
     Active Substance: BACLOFEN
     Indication: OESOPHAGEAL SPASM
     Dosage: 1 DF, BID
     Route: 065
     Dates: start: 20190205
  3. TOPAMAX [Concomitant]
     Active Substance: TOPIRAMATE
     Indication: MIGRAINE
     Dosage: UNK, QD
     Route: 048

REACTIONS (6)
  - Migraine [Unknown]
  - Photophobia [Unknown]
  - Dry mouth [Unknown]
  - Diarrhoea [Unknown]
  - Eye pain [Unknown]
  - Vomiting [Unknown]

NARRATIVE: CASE EVENT DATE: 20190207
